FAERS Safety Report 20587089 (Version 1)
Quarter: 2022Q1

REPORT INFORMATION
  Report Type: Spontaneous
  Country: US (occurrence: US)
  Receive Date: 20220314
  Receipt Date: 20220314
  Transmission Date: 20220423
  Serious: No
  Sender: FDA-Public Use
  Company Number: US-AUROBINDO-AUR-APL-2021-047841

PATIENT
  Age: 56 Year
  Sex: Female
  Weight: 58.9 kg

DRUGS (2)
  1. DALFAMPRIDINE [Suspect]
     Active Substance: DALFAMPRIDINE
     Indication: Multiple sclerosis
     Dosage: 1 DOSAGE FORM, TWO TIMES A DAY
     Route: 048
     Dates: start: 20210411
  2. CYMBALTA [Concomitant]
     Active Substance: DULOXETINE HYDROCHLORIDE
     Indication: Depression
     Dosage: 60 MILLIGRAM, TWO TIMES A DAY
     Route: 065

REACTIONS (4)
  - Headache [Recovered/Resolved]
  - Dizziness [Recovered/Resolved]
  - Back pain [Recovered/Resolved]
  - Balance disorder [Recovered/Resolved]
